FAERS Safety Report 23100544 (Version 2)
Quarter: 2023Q4

REPORT INFORMATION
  Report Type: Report from Study
  Country: CA (occurrence: None)
  Receive Date: 20231024
  Receipt Date: 20231027
  Transmission Date: 20240110
  Serious: Yes (Death, Other)
  Sender: FDA-Public Use
  Company Number: 2023A239564

PATIENT
  Sex: Male

DRUGS (7)
  1. FASENRA [Suspect]
     Active Substance: BENRALIZUMAB
     Indication: Asthma
     Dosage: 30.0MG UNKNOWN
     Route: 058
     Dates: start: 20210414
  2. FASENRA [Suspect]
     Active Substance: BENRALIZUMAB
     Indication: Asthma
     Dosage: 30.0MG UNKNOWN
     Route: 058
     Dates: start: 20230809
  3. PREDNISONE [Concomitant]
     Active Substance: PREDNISONE
     Dosage: 15.0MG UNKNOWN
  4. ALVESCO [Concomitant]
     Active Substance: CICLESONIDE
     Dosage: 200.0UG UNKNOWN
  5. OLODATEROL HYDROCHLORIDE\TIOTROPIUM BROMIDE MONOHYDRATE [Concomitant]
     Active Substance: OLODATEROL HYDROCHLORIDE\TIOTROPIUM BROMIDE MONOHYDRATE
     Dosage: 2.5UG UNKNOWN
  6. VENTOLIN [Concomitant]
     Active Substance: ALBUTEROL SULFATE
     Dosage: 100.0UG UNKNOWN
  7. OXYGEN [Concomitant]
     Active Substance: OXYGEN

REACTIONS (1)
  - Death [Fatal]
